FAERS Safety Report 7973936-2 (Version None)
Quarter: 2011Q4

REPORT INFORMATION
  Report Type: 
  Country: None (occurrence: None)
  Receive Date: 20111129
  Receipt Date: 20110815
  Transmission Date: 20120403
  Serious: Yes (Other)
  Sender: FDA-Public Use
  Company Number: PHEH2011US01592

PATIENT
  Sex: Male

DRUGS (1)
  1. AFINITOR [Suspect]
     Dosage: 10 MG, DAILY, ORAL
     Route: 048
     Dates: start: 20110426, end: 20110815

REACTIONS (1)
  - DISEASE PROGRESSION [None]
